FAERS Safety Report 21731141 (Version 1)
Quarter: 2022Q4

REPORT INFORMATION
  Report Type: Report from Study
  Country: US (occurrence: US)
  Receive Date: 20221215
  Receipt Date: 20221215
  Transmission Date: 20230113
  Serious: No
  Sender: FDA-Public Use
  Company Number: US-ABBVIE-4202921

PATIENT
  Age: 86 Year
  Sex: Female

DRUGS (1)
  1. RINVOQ [Suspect]
     Active Substance: UPADACITINIB
     Indication: Rheumatoid arthritis
     Dosage: EXTENDED RELEASE?FORM STRENGTH: 15 MILLIGRAM
     Route: 048
     Dates: start: 20221109, end: 20221112

REACTIONS (4)
  - Diarrhoea [Recovered/Resolved]
  - Nasopharyngitis [Not Recovered/Not Resolved]
  - Rheumatoid arthritis [Unknown]
  - Illness [Unknown]

NARRATIVE: CASE EVENT DATE: 20221101
